FAERS Safety Report 7724555-4 (Version None)
Quarter: 2011Q3

REPORT INFORMATION
  Report Type: 
  Country: None (occurrence: None)
  Receive Date: 20110901
  Receipt Date: 20110830
  Transmission Date: 20111222
  Serious: No
  Sender: FDA-Public Use
  Company Number: US-TEVA-298700USA

PATIENT
  Sex: Female

DRUGS (4)
  1. PROAIR HFA [Suspect]
     Indication: ASTHMA
     Dosage: QID
     Dates: start: 20110501
  2. IBUPROFEN [Concomitant]
  3. BUDESONIDE W/FORMOTEROL FUMARATE [Concomitant]
  4. BLOOD PRESSURE MEDICINE [Concomitant]

REACTIONS (1)
  - DIZZINESS [None]
